FAERS Safety Report 14771278 (Version 1)
Quarter: 2018Q2

REPORT INFORMATION
  Report Type: Spontaneous
  Country: US (occurrence: US)
  Receive Date: 20180417
  Receipt Date: 20180417
  Transmission Date: 20180711
  Serious: No
  Sender: FDA-Public Use
  Company Number: US-ALLERGAN-1749262US

PATIENT
  Age: 86 Year
  Sex: Female

DRUGS (4)
  1. COMBIGAN [Concomitant]
     Active Substance: BRIMONIDINE TARTRATE\TIMOLOL MALEATE
     Indication: OCULAR HYPERTENSION
     Dosage: UNK
     Route: 047
  2. DORZOLAMIDE [Concomitant]
     Active Substance: DORZOLAMIDE
     Indication: OCULAR HYPERTENSION
     Dosage: UNK
     Route: 047
  3. LUMIGAN [Suspect]
     Active Substance: BIMATOPROST
     Indication: OCULAR HYPERTENSION
     Dosage: UNK
     Route: 047
  4. COMBIGAN [Concomitant]
     Active Substance: BRIMONIDINE TARTRATE\TIMOLOL MALEATE
     Dosage: UNK
     Route: 047

REACTIONS (1)
  - Skin hyperpigmentation [Not Recovered/Not Resolved]
